FAERS Safety Report 4504065-8 (Version None)
Quarter: 2004Q4

REPORT INFORMATION
  Report Type: 
  Country: None (occurrence: None)
  Receive Date: 20041115
  Receipt Date: 20041102
  Transmission Date: 20050328
  Serious: Yes (Other)
  Sender: FDA-Public Use
  Company Number: 2004086757

PATIENT
  Sex: Male
  Weight: 101.6057 kg

DRUGS (4)
  1. HYDROCORTISONE [Suspect]
     Indication: SKIN IRRITATION
     Dosage: 6 DOTS ON HAND EVERY DAY, TOPICAL
     Route: 061
     Dates: start: 19640101
  2. NEOSPORIN [Suspect]
     Indication: SKIN IRRITATION
     Dosage: 6 DOTS ON HAND EVERY DAY, TOPICAL
     Route: 061
     Dates: start: 19640101
  3. GLYBURIDE [Concomitant]
  4. DRUG, UNSPECIFIED (DRUG,UNSPECIFIED) [Suspect]
     Indication: SKIN IRRITATION
     Dosage: MIXED WITH CORTISZONE  +

REACTIONS (2)
  - MALIGNANT MELANOMA STAGE IV [None]
  - MEDICATION ERROR [None]
